FAERS Safety Report 26001853 (Version 2)
Quarter: 2025Q4

REPORT INFORMATION
  Report Type: Spontaneous
  Country: JP (occurrence: JP)
  Receive Date: 20251105
  Receipt Date: 20251212
  Transmission Date: 20260118
  Serious: Yes (Other)
  Sender: PFIZER
  Company Number: JP-ONO-2025JP019879

PATIENT
  Age: 7 Decade

DRUGS (3)
  1. BRAFTOVI [Suspect]
     Active Substance: ENCORAFENIB
     Indication: Colon cancer
     Dosage: UNK
     Route: 048
  2. MEKTOVI [Suspect]
     Active Substance: BINIMETINIB
     Indication: Colon cancer
     Dosage: UNK
     Route: 048
  3. CETUXIMAB [Concomitant]
     Active Substance: CETUXIMAB
     Indication: Colon cancer
     Route: 065

REACTIONS (4)
  - Ileus [Unknown]
  - Colon cancer [Unknown]
  - Malignant neoplasm progression [Unknown]
  - Renal disorder [Unknown]
